FAERS Safety Report 6009896-3 (Version None)
Quarter: 2008Q4

REPORT INFORMATION
  Report Type: 
  Country: None (occurrence: None)
  Receive Date: 20081218
  Receipt Date: 20081212
  Transmission Date: 20090506
  Serious: Yes (Disabling)
  Sender: FDA-Public Use
  Company Number: GB-RANBAXY-2008RR-19991

PATIENT
  Age: 60 Year
  Sex: Female

DRUGS (3)
  1. PRAVASTATIN [Suspect]
     Indication: HYPERLIPIDAEMIA
     Dosage: 10 MG, UNK
     Route: 048
     Dates: start: 20081103, end: 20081106
  2. GLUCOSAMINE [Concomitant]
  3. SIMVASTATIN [Concomitant]
     Indication: HYPERLIPIDAEMIA
     Dosage: 20 MG, UNK
     Route: 048
     Dates: start: 20071001, end: 20080907

REACTIONS (2)
  - ANXIETY [None]
  - PALPITATIONS [None]
